FAERS Safety Report 5938237-2 (Version None)
Quarter: 2008Q4

REPORT INFORMATION
  Report Type: 
  Country: None (occurrence: None)
  Receive Date: 20081031
  Receipt Date: 20081022
  Transmission Date: 20090506
  Serious: Yes (Other)
  Sender: FDA-Public Use
  Company Number: AU-PFIZER INC-2008089404

PATIENT
  Sex: Male

DRUGS (1)
  1. CABASER [Suspect]

REACTIONS (2)
  - HALLUCINATION, VISUAL [None]
  - INCONTINENCE [None]
